FAERS Safety Report 4908686-X (Version None)
Quarter: 2006Q1

REPORT INFORMATION
  Report Type: 
  Country: None (occurrence: None)
  Receive Date: 20060210
  Receipt Date: 20051014
  Transmission Date: 20060701
  Serious: No
  Sender: FDA-Public Use
  Company Number: US-GLAXOSMITHKLINE-A0578512A

PATIENT
  Sex: Female

DRUGS (3)
  1. PAXIL CR [Suspect]
     Indication: DRUG USE FOR UNKNOWN INDICATION
     Dosage: 25MG PER DAY
     Route: 048
  2. EXCEDRIN (MIGRAINE) [Concomitant]
     Route: 065
  3. ALCOHOL [Concomitant]
     Route: 048

REACTIONS (2)
  - DEPRESSION [None]
  - INSOMNIA [None]
